FAERS Safety Report 12790458 (Version 1)
Quarter: 2016Q3

REPORT INFORMATION
  Report Type: Spontaneous
  Country: CA (occurrence: CA)
  Receive Date: 20160929
  Receipt Date: 20160929
  Transmission Date: 20161109
  Serious: Yes (Hospitalization)
  Sender: FDA-Public Use
  Company Number: CA-BAXTER-2016BAX048758

PATIENT
  Age: 5 Year
  Sex: Female
  Weight: 14 kg

DRUGS (3)
  1. SEVOFLURANE. [Suspect]
     Active Substance: SEVOFLURANE
     Indication: ADENOTONSILLECTOMY
     Route: 055
  2. PROPOFOL. [Suspect]
     Active Substance: PROPOFOL
     Indication: ADENOTONSILLECTOMY
     Route: 042
  3. MORPHINE SULPHATE USP [Suspect]
     Active Substance: MORPHINE SULFATE
     Indication: ADENOTONSILLECTOMY
     Dosage: LIQUID INTRAMUSCULAR
     Route: 042

REACTIONS (4)
  - Wheezing [Unknown]
  - Depressed level of consciousness [Unknown]
  - Respiratory depression [Unknown]
  - Stridor [Unknown]
